FAERS Safety Report 6862110-9 (Version None)
Quarter: 2010Q3

REPORT INFORMATION
  Report Type: 
  Country: None (occurrence: None)
  Receive Date: 20100721
  Receipt Date: 20100707
  Transmission Date: 20110219
  Serious: Yes (Other)
  Sender: FDA-Public Use
  Company Number: PHHY2010US42458

PATIENT
  Sex: Female

DRUGS (3)
  1. EXJADE [Suspect]
     Dosage: 1500 MG
  2. EXJADE [Suspect]
     Dosage: 1200 MG
  3. EXJADE [Suspect]
     Dosage: 500 MG, BID

REACTIONS (2)
  - DIARRHOEA [None]
  - VISUAL IMPAIRMENT [None]
